FAERS Safety Report 10080456 (Version 3)
Quarter: 2014Q2

REPORT INFORMATION
  Report Type: Report from Study
  Country: CA (occurrence: CA)
  Receive Date: 20140416
  Receipt Date: 20140421
  Transmission Date: 20141212
  Serious: Yes (Other)
  Sender: FDA-Public Use
  Company Number: CA-ROCHE-1369728

PATIENT
  Age: 58 Year
  Sex: Male

DRUGS (11)
  1. AVASTIN [Suspect]
     Indication: GLIOBLASTOMA
     Route: 042
     Dates: start: 20140310
  2. AVASTIN [Suspect]
     Route: 042
     Dates: start: 20140324
  3. CRESTOR [Suspect]
     Indication: PRODUCT USED FOR UNKNOWN INDICATION
     Route: 065
  4. FRISIUM [Suspect]
     Indication: PRODUCT USED FOR UNKNOWN INDICATION
     Route: 065
  5. TRAZODONE [Suspect]
     Indication: PRODUCT USED FOR UNKNOWN INDICATION
     Route: 065
     Dates: start: 20140409
  6. CIPRALEX [Suspect]
     Indication: ANXIETY
     Route: 065
     Dates: start: 20140409
  7. AVODART [Concomitant]
     Route: 065
  8. KEPPRA [Concomitant]
  9. PANTOPRAZOLE [Concomitant]
  10. DECADRON [Concomitant]
  11. DOCUSATE [Concomitant]

REACTIONS (7)
  - Dyspnoea [Not Recovered/Not Resolved]
  - Asthenia [Not Recovered/Not Resolved]
  - Abdominal pain [Recovered/Resolved]
  - Dizziness [Not Recovered/Not Resolved]
  - Faeces soft [Recovered/Resolved]
  - Accidental overdose [Unknown]
  - Malignant neoplasm progression [Unknown]
